FAERS Safety Report 6160887-1 (Version None)
Quarter: 2009Q2

REPORT INFORMATION
  Report Type: 
  Country: None (occurrence: None)
  Receive Date: 20090417
  Receipt Date: 20090417
  Transmission Date: 20091009
  Serious: Yes (Other)
  Sender: FDA-Public Use
  Company Number: None

PATIENT
  Sex: Male
  Weight: 80 kg

DRUGS (1)
  1. PHYTONADIONE [Suspect]
     Dosage: 10 MG IV
     Route: 042
     Dates: start: 20090322, end: 20090323

REACTIONS (5)
  - HEART RATE INCREASED [None]
  - LIP SWELLING [None]
  - LOCAL SWELLING [None]
  - OXYGEN SATURATION DECREASED [None]
  - RASH GENERALISED [None]
